FAERS Safety Report 7229053-2 (Version None)
Quarter: 2011Q1

REPORT INFORMATION
  Report Type: 
  Country: None (occurrence: None)
  Receive Date: 20110117
  Receipt Date: 20110112
  Transmission Date: 20110831
  Serious: Yes (Death)
  Sender: FDA-Public Use
  Company Number: PHHY2010MY51332

PATIENT
  Sex: Male

DRUGS (2)
  1. CALCIUM [Concomitant]
  2. ACLASTA [Suspect]
     Dosage: 5 MG
     Route: 042
     Dates: start: 20090620

REACTIONS (1)
  - INFECTION [None]
